FAERS Safety Report 4671073-6 (Version None)
Quarter: 2005Q2

REPORT INFORMATION
  Report Type: 
  Country: None (occurrence: None)
  Receive Date: 20050523
  Receipt Date: 20050510
  Transmission Date: 20051028
  Serious: Yes (Death, Hospitalization, Other)
  Sender: FDA-Public Use
  Company Number: MAG-2005-0000355

PATIENT
  Age: 46 Year
  Sex: Male

DRUGS (1)
  1. MORPHINE SULFATE [Suspect]
     Indication: ANALGESIC EFFECT
     Dosage: 90 MG ORAL
     Route: 048
     Dates: start: 20050503, end: 20030503

REACTIONS (8)
  - DYSPNOEA [None]
  - FATIGUE [None]
  - INCORRECT DOSE ADMINISTERED [None]
  - METASTASIS [None]
  - NAUSEA [None]
  - RESPIRATORY DISORDER [None]
  - SOMNOLENCE [None]
  - VISUAL DISTURBANCE [None]
